FAERS Safety Report 4799790-8 (Version None)
Quarter: 2005Q4

REPORT INFORMATION
  Report Type: 
  Country: None (occurrence: None)
  Receive Date: 20051012
  Receipt Date: 20051012
  Transmission Date: 20060501
  Serious: No
  Sender: FDA-Public Use
  Company Number: None

PATIENT
  Sex: Male
  Weight: 158.759 kg

DRUGS (9)
  1. AREDIA [Suspect]
     Indication: MULTIPLE MYELOMA
     Dosage: 90MG Q4WK IV DRIP
     Route: 041
     Dates: start: 20030429, end: 20050809
  2. THALOMID [Concomitant]
  3. DECADRON [Concomitant]
  4. THEO-DUR [Concomitant]
  5. CARTIA XT [Concomitant]
  6. ALTOCOR [Concomitant]
  7. GLUCOVANCE [Concomitant]
  8. LIPITOR [Concomitant]
  9. CRESTOR [Concomitant]

REACTIONS (3)
  - JAW DISORDER [None]
  - OSTEONECROSIS [None]
  - POST PROCEDURAL COMPLICATION [None]
